FAERS Safety Report 8443185-2 (Version None)
Quarter: 2012Q2

REPORT INFORMATION
  Report Type: 
  Country: None (occurrence: None)
  Receive Date: 20120616
  Receipt Date: 20120605
  Transmission Date: 20120825
  Serious: Yes (Hospitalization)
  Sender: FDA-Public Use
  Company Number: US-VERTEX PHARMACEUTICALS INC.-AE-2012-008439

PATIENT
  Sex: Female

DRUGS (3)
  1. INCIVEK [Suspect]
     Indication: HEPATITIS C
     Route: 048
     Dates: start: 20120316, end: 20120319
  2. PEGASYS [Concomitant]
     Indication: HEPATITIS C
     Dates: start: 20120316, end: 20120319
  3. RIBAVIRIN [Concomitant]
     Indication: HEPATITIS C
     Dates: start: 20120316, end: 20120319

REACTIONS (3)
  - SKIN BURNING SENSATION [None]
  - RASH GENERALISED [None]
  - SWELLING [None]
